FAERS Safety Report 25176104 (Version 1)
Quarter: 2025Q2

REPORT INFORMATION
  Report Type: Spontaneous
  Country: US (occurrence: US)
  Receive Date: 20250409
  Receipt Date: 20250409
  Transmission Date: 20250717
  Serious: No
  Sender: JOHNSON AND JOHNSON
  Company Number: US-JNJFOC-20250377697

PATIENT
  Age: 80 Year
  Sex: Male

DRUGS (9)
  1. ZYTIGA [Suspect]
     Active Substance: ABIRATERONE ACETATE
     Indication: Prostate cancer
     Route: 048
     Dates: end: 20250210
  2. ORGOVYX [Suspect]
     Active Substance: RELUGOLIX
     Indication: Prostate cancer
     Route: 048
  3. LEVOTHYROXINE SODIUM [Concomitant]
     Active Substance: LEVOTHYROXINE SODIUM
  4. LUPRON [Concomitant]
     Active Substance: LEUPROLIDE ACETATE
  5. PREDNISONE [Concomitant]
     Active Substance: PREDNISONE
  6. VITAMIN D3 [Concomitant]
     Active Substance: CHOLECALCIFEROL
  7. CEFDINIR [Concomitant]
     Active Substance: CEFDINIR
  8. ELIQUIS [Concomitant]
     Active Substance: APIXABAN
  9. VITAMINS NOS [Concomitant]
     Active Substance: VITAMINS

REACTIONS (1)
  - Hepatic enzyme increased [Unknown]
